FAERS Safety Report 10261608 (Version 2)
Quarter: 2014Q2

REPORT INFORMATION
  Report Type: Spontaneous
  Country: US (occurrence: US)
  Receive Date: 20140626
  Receipt Date: 20140626
  Transmission Date: 20141212
  Serious: No
  Sender: FDA-Public Use
  Company Number: US-MYLANLABS-2014S1005278

PATIENT
  Sex: Female

DRUGS (1)
  1. ATORVASTATIN CALCIUM TABLETS [Suspect]

REACTIONS (1)
  - Wrong technique in drug usage process [Recovered/Resolved]
